FAERS Safety Report 15590743 (Version 2)
Quarter: 2018Q4

REPORT INFORMATION
  Report Type: Spontaneous
  Country: US (occurrence: US)
  Receive Date: 20181106
  Receipt Date: 20181120
  Transmission Date: 20190205
  Serious: Yes (Other)
  Sender: FDA-Public Use
  Company Number: US-AKORN PHARMACEUTICALS-2018AKN01713

PATIENT
  Age: 14 Year
  Sex: Female
  Weight: 49.89 kg

DRUGS (3)
  1. UNSPECIFIED CALCIUM SUPPLEMENT [Concomitant]
  2. LORATADINE. [Concomitant]
     Active Substance: LORATADINE
     Dosage: 10 MG, AS NEEDED, 1X/DAY
  3. MYORISAN [Suspect]
     Active Substance: ISOTRETINOIN
     Indication: ACNE
     Dosage: 40 MG, 1X/DAY
     Dates: start: 20180618, end: 2018

REACTIONS (4)
  - Crying [Recovered/Resolved]
  - Off label use [Recovered/Resolved]
  - Social avoidant behaviour [Recovered/Resolved]
  - Mood altered [Recovered/Resolved]

NARRATIVE: CASE EVENT DATE: 20180618
